FAERS Safety Report 20962687 (Version 1)
Quarter: 2022Q2

REPORT INFORMATION
  Report Type: Report from Study
  Country: US (occurrence: US)
  Receive Date: 20220615
  Receipt Date: 20220615
  Transmission Date: 20220721
  Serious: Yes (Hospitalization)
  Sender: FDA-Public Use
  Company Number: US-BIOVITRUM-2022US07690

PATIENT
  Sex: Female

DRUGS (1)
  1. KINERET [Suspect]
     Active Substance: ANAKINRA
     Indication: Product used for unknown indication
     Route: 058

REACTIONS (5)
  - Chest pain [Unknown]
  - Skin exfoliation [Unknown]
  - Injection site pain [Unknown]
  - Injection site bruising [Unknown]
  - Injection site erythema [Recovering/Resolving]
